FAERS Safety Report 23503964 (Version 1)
Quarter: 2024Q1

REPORT INFORMATION
  Report Type: Spontaneous
  Country: US (occurrence: US)
  Receive Date: 20240209
  Receipt Date: 20240209
  Transmission Date: 20240410
  Serious: Yes (Other)
  Sender: FDA-Public Use
  Company Number: US-CIPLA LTD.-2024US01340

PATIENT

DRUGS (3)
  1. NADOLOL [Suspect]
     Active Substance: NADOLOL
     Indication: Arrhythmia prophylaxis
     Dosage: 60 MILLIGRAM PER DAY
     Route: 065
  2. MAGNESIUM [Suspect]
     Active Substance: MAGNESIUM
     Indication: Tachycardia foetal
     Dosage: UNK, 1 G/H
     Route: 042
  3. MAGNESIUM [Suspect]
     Active Substance: MAGNESIUM
     Dosage: UNK
     Route: 048

REACTIONS (4)
  - Placental insufficiency [Unknown]
  - Oligohydramnios [Unknown]
  - Pre-eclampsia [Unknown]
  - Exposure during pregnancy [Unknown]
